FAERS Safety Report 17525291 (Version 1)
Quarter: 2020Q1

REPORT INFORMATION
  Report Type: Report from Study
  Country: JP (occurrence: JP)
  Receive Date: 20200310
  Receipt Date: 20200310
  Transmission Date: 20200409
  Serious: Yes (Hospitalization)
  Sender: FDA-Public Use
  Company Number: JP-PFIZER INC-2020102691

PATIENT
  Age: 75 Year
  Sex: Female
  Weight: 52 kg

DRUGS (12)
  1. XELJANZ [Suspect]
     Active Substance: TOFACITINIB CITRATE
     Indication: RHEUMATOID ARTHRITIS
     Dosage: 5 MG, 2X/DAY
     Route: 048
     Dates: start: 20170112, end: 20180421
  2. KEFRAL [Suspect]
     Active Substance: CEFACLOR
     Dosage: UNK
     Dates: start: 20191218
  3. PREDNISOLONE. [Concomitant]
     Active Substance: PREDNISOLONE
     Dosage: 5 MG, DAILY
     Dates: start: 20170112
  4. FOLIAMIN [Concomitant]
     Active Substance: FOLIC ACID
     Route: 048
  5. LIXIANA [Concomitant]
     Active Substance: EDOXABAN TOSYLATE
     Dosage: UNK
     Route: 048
     Dates: start: 20170207
  6. CELECOX [Concomitant]
     Active Substance: CELECOXIB
     Route: 048
  7. METHOTREXATE SODIUM. [Concomitant]
     Active Substance: METHOTREXATE SODIUM
     Dosage: 12 MG, WEEKLY
     Dates: end: 20170626
  8. VOLTAREN [Concomitant]
     Active Substance: DICLOFENAC SODIUM
  9. VOLTAREN [Concomitant]
     Active Substance: DICLOFENAC SODIUM
  10. METHOTREXATE SODIUM. [Concomitant]
     Active Substance: METHOTREXATE SODIUM
     Dosage: 8 MG, WEEKLY
     Dates: start: 20171101, end: 20190915
  11. ATORVASTATIN [Concomitant]
     Active Substance: ATORVASTATIN
     Route: 048
  12. XELJANZ [Suspect]
     Active Substance: TOFACITINIB CITRATE
     Dosage: 5 MG, 2X/DAY
     Route: 048
     Dates: start: 20180504, end: 20190916

REACTIONS (4)
  - Arthritis bacterial [Not Recovered/Not Resolved]
  - Psoas abscess [Recovering/Resolving]
  - Pyelonephritis [Recovering/Resolving]
  - Pseudomembranous colitis [Recovered/Resolved]

NARRATIVE: CASE EVENT DATE: 20190915
